FAERS Safety Report 20307249 (Version 1)
Quarter: 2022Q1

REPORT INFORMATION
  Report Type: Spontaneous
  Country: US (occurrence: US)
  Receive Date: 20220107
  Receipt Date: 20220107
  Transmission Date: 20220423
  Serious: No
  Sender: FDA-Public Use
  Company Number: US-009507513-2201USA000078

PATIENT
  Age: 80 Year
  Sex: Male

DRUGS (6)
  1. RECARBRIO [Suspect]
     Active Substance: CILASTATIN\IMIPENEM ANHYDROUS\RELEBACTAM ANHYDROUS
     Indication: Urinary tract infection
     Dosage: 1000 MILLIGRAM, EVERY 6 HOURS
  2. RECARBRIO [Suspect]
     Active Substance: CILASTATIN\IMIPENEM ANHYDROUS\RELEBACTAM ANHYDROUS
     Indication: Bacteraemia
  3. RECARBRIO [Suspect]
     Active Substance: CILASTATIN\IMIPENEM ANHYDROUS\RELEBACTAM ANHYDROUS
     Indication: Escherichia infection
  4. MEROPENEM [Concomitant]
     Active Substance: MEROPENEM
     Indication: Urinary tract infection
  5. MEROPENEM [Concomitant]
     Active Substance: MEROPENEM
     Indication: Bacteraemia
  6. MEROPENEM [Concomitant]
     Active Substance: MEROPENEM
     Indication: Escherichia infection

REACTIONS (1)
  - Off label use [Unknown]
